FAERS Safety Report 9409819 (Version 1)
Quarter: 2013Q3

REPORT INFORMATION
  Report Type: Spontaneous
  Country: CH (occurrence: CH)
  Receive Date: 20130719
  Receipt Date: 20130719
  Transmission Date: 20140515
  Serious: Yes (Hospitalization)
  Sender: FDA-Public Use
  Company Number: CH-SANOFI-AVENTIS-2013SA070482

PATIENT
  Age: 8 Year
  Sex: Female
  Weight: 30 kg

DRUGS (10)
  1. CLEXANE [Suspect]
     Indication: ADENOVIRUS INFECTION
     Dosage: FORM: VIALS
     Route: 058
     Dates: start: 201212
  2. NOPIL FORTE [Suspect]
     Indication: ADENOVIRUS INFECTION
     Route: 048
     Dates: start: 201212, end: 20130424
  3. ESOMEPRAZOLE MAGNESIUM [Suspect]
     Indication: PRODUCT USED FOR UNKNOWN INDICATION
     Dosage: STRENGTH: 44.5  MG
     Route: 048
     Dates: start: 201212, end: 20130424
  4. ALDACTONE [Suspect]
     Indication: ADENOVIRUS INFECTION
     Route: 048
     Dates: start: 201212
  5. ESIDREX [Suspect]
     Indication: ADENOVIRUS INFECTION
     Route: 048
     Dates: start: 201212
  6. CARVEDILOL [Suspect]
     Indication: ADENOVIRUS INFECTION
     Route: 048
     Dates: start: 201212
  7. DIGOXIN [Suspect]
     Indication: ADENOVIRUS INFECTION
     Route: 048
     Dates: start: 201212
  8. VALTREX [Suspect]
     Indication: PRODUCT USED FOR UNKNOWN INDICATION
     Route: 058
     Dates: start: 201212, end: 20130424
  9. MAGNESIUM ASPARTATE HYDROCHLORIDE [Concomitant]
     Route: 048
     Dates: start: 201212, end: 20130424
  10. KALIUM [Concomitant]
     Route: 048
     Dates: start: 201212, end: 20130424

REACTIONS (1)
  - Pancytopenia [Recovered/Resolved]
